FAERS Safety Report 12787097 (Version 1)
Quarter: 2016Q3

REPORT INFORMATION
  Report Type: Spontaneous
  Country: US (occurrence: US)
  Receive Date: 20160928
  Receipt Date: 20160928
  Transmission Date: 20161109
  Serious: No
  Sender: FDA-Public Use
  Company Number: US-DRREDDYS-DRL/USA/16/0078370

PATIENT
  Age: 6 Year
  Sex: Female

DRUGS (2)
  1. AMOXICILLIN W/CLAVULANATE POTASSIUM 250 MG/5 ML FOR ORAL SUSPENSION [Suspect]
     Active Substance: AMOXICILLIN\CLAVULANATE POTASSIUM
     Indication: INFECTION
     Route: 048
     Dates: start: 20160323
  2. BROMFED DM [Concomitant]
     Active Substance: BROMPHENIRAMINE MALEATE\DEXTROMETHORPHAN HYDROBROMIDE\PSEUDOEPHEDRINE HYDROCHLORIDE
     Indication: PRODUCT USED FOR UNKNOWN INDICATION
     Route: 065
     Dates: start: 20160323

REACTIONS (2)
  - No adverse event [Unknown]
  - Product colour issue [Unknown]

NARRATIVE: CASE EVENT DATE: 20160327
